FAERS Safety Report 16827506 (Version 3)
Quarter: 2019Q4

REPORT INFORMATION
  Report Type: Spontaneous
  Country: US (occurrence: US)
  Receive Date: 20190919
  Receipt Date: 20191125
  Transmission Date: 20200122
  Serious: Yes (Hospitalization)
  Sender: FDA-Public Use
  Company Number: US-PFIZER INC-2019399755

PATIENT
  Age: 80 Year
  Sex: Female
  Weight: 63.5 kg

DRUGS (9)
  1. XELJANZ [Suspect]
     Active Substance: TOFACITINIB CITRATE
     Dosage: 15 MG, UNK [3 PILLS AT THE SAME TIME SO SHE JUST SEPARATED IT BY AN HOUR OR SO]
  2. PREDNISONE. [Suspect]
     Active Substance: PREDNISONE
     Dosage: 1 DF, UNK (1 TABLET FOR 10 DAYS)
     Route: 048
     Dates: start: 20190903
  3. XELJANZ [Suspect]
     Active Substance: TOFACITINIB CITRATE
     Indication: RHEUMATOID ARTHRITIS
     Dosage: 5 MG, 2X/DAY [5 MG BY MOUTH ONE IN THE MORNING AND 1 AT NIGHT]
     Route: 048
     Dates: start: 20190910
  4. ENBREL [Concomitant]
     Active Substance: ETANERCEPT
     Dosage: UNK
     Dates: start: 201901
  5. TRAMADOL. [Concomitant]
     Active Substance: TRAMADOL
     Indication: PAIN
     Dosage: UNK AT NIGHT
     Dates: start: 2017
  6. XELJANZ [Suspect]
     Active Substance: TOFACITINIB CITRATE
     Dosage: UNK
  7. GABAPENTIN. [Concomitant]
     Active Substance: GABAPENTIN
     Dosage: UNK FOR A FEW YEARS
     Dates: start: 2016
  8. PREDNISONE. [Suspect]
     Active Substance: PREDNISONE
     Indication: RHEUMATOID ARTHRITIS
     Dosage: 2 DF, UNK (2 TABLETS FOR 10 DAYS)
     Route: 048
     Dates: start: 20190903
  9. METHOTREXATE SODIUM. [Concomitant]
     Active Substance: METHOTREXATE SODIUM
     Indication: RHEUMATOID ARTHRITIS
     Dosage: 2.5 MG, WEEKLY
     Dates: start: 201504

REACTIONS (6)
  - Dizziness [Unknown]
  - Intentional overdose [Recovered/Resolved]
  - Abdominal pain upper [Unknown]
  - Insomnia [Unknown]
  - Middle insomnia [Unknown]
  - Malaise [Recovered/Resolved]

NARRATIVE: CASE EVENT DATE: 20190915
